FAERS Safety Report 23597840 (Version 2)
Quarter: 2024Q1

REPORT INFORMATION
  Report Type: Spontaneous
  Country: RS (occurrence: RS)
  Receive Date: 20240305
  Receipt Date: 20240318
  Transmission Date: 20240410
  Serious: Yes (Hospitalization, Other)
  Sender: FDA-Public Use
  Company Number: RS-009507513-2402SRB009639

PATIENT
  Sex: Female

DRUGS (6)
  1. PEMBROLIZUMAB [Suspect]
     Active Substance: PEMBROLIZUMAB
     Indication: Non-small cell lung cancer
     Dosage: 300MG, EVERY 3 WEEKS, 33 CYCLES
     Route: 042
     Dates: start: 2018, end: 202010
  2. PEMBROLIZUMAB [Suspect]
     Active Substance: PEMBROLIZUMAB
     Indication: Lung adenocarcinoma stage IV
     Dosage: 300MG, EVERY 3 WEEKS, 33 CYCLES
     Route: 042
     Dates: start: 202011, end: 2020
  3. ISONIAZID [Suspect]
     Active Substance: ISONIAZID
     Indication: Tuberculosis
     Dosage: 300 MILLIGRAM, QD, 5 MG/KG
     Route: 048
     Dates: start: 202010, end: 202101
  4. RIFAMPIN [Suspect]
     Active Substance: RIFAMPIN
     Indication: Tuberculosis
     Dosage: 600 MILLIGRAM, QD, 10 MG/KG
     Route: 048
     Dates: start: 202010, end: 202101
  5. ETHAMBUTOL [Suspect]
     Active Substance: ETHAMBUTOL HYDROCHLORIDE
     Indication: Tuberculosis
     Dosage: 1200 MILLIGRAM, QD, 25 MG/KG
     Route: 048
     Dates: start: 202010, end: 202101
  6. PYRAZINAMIDE [Suspect]
     Active Substance: PYRAZINAMIDE
     Indication: Tuberculosis
     Dosage: 1200 MILLIGRAM, QD, 25 MG/KG
     Route: 048
     Dates: start: 202010, end: 202101

REACTIONS (2)
  - Disseminated tuberculosis [Recovering/Resolving]
  - Off label use [Unknown]

NARRATIVE: CASE EVENT DATE: 20180101
